FAERS Safety Report 8163884-X (Version None)
Quarter: 2012Q1

REPORT INFORMATION
  Report Type: 
  Country: None (occurrence: None)
  Receive Date: 20120224
  Receipt Date: 20120213
  Transmission Date: 20120608
  Serious: Yes (Hospitalization)
  Sender: FDA-Public Use
  Company Number: US-JNJFOC-20120206929

PATIENT
  Sex: Female
  Weight: 90.72 kg

DRUGS (9)
  1. REMICADE [Suspect]
     Indication: CROHN'S DISEASE
     Route: 042
  2. REMICADE [Suspect]
     Route: 042
     Dates: start: 20040101
  3. REMICADE [Suspect]
     Route: 042
     Dates: start: 20040101
  4. TRAZODONE HCL [Suspect]
     Indication: SLEEP DISORDER
     Route: 048
  5. REMICADE [Suspect]
     Indication: ARTHRITIS
     Route: 042
  6. FENTANYL [Concomitant]
     Indication: ARACHNOIDITIS
     Route: 065
     Dates: start: 20060101
  7. LYRICA [Concomitant]
     Indication: FIBROMYALGIA
     Route: 048
     Dates: start: 20030101
  8. CYMBALTA [Concomitant]
     Indication: FIBROMYALGIA
     Route: 048
     Dates: start: 20030101
  9. IMURAN [Concomitant]
     Indication: PROPHYLAXIS
     Route: 065
     Dates: start: 20040101

REACTIONS (10)
  - RENAL FAILURE [None]
  - DYSPNOEA [None]
  - SEPSIS [None]
  - HYPOTENSION [None]
  - HEADACHE [None]
  - INSOMNIA [None]
  - LUNG DISORDER [None]
  - POLYNEUROPATHY [None]
  - URINARY TRACT INFECTION BACTERIAL [None]
  - PAIN IN EXTREMITY [None]
